FAERS Safety Report 9530392 (Version 1)
Quarter: 2013Q3

REPORT INFORMATION
  Report Type: Report from Study
  Country: GB (occurrence: GB)
  Receive Date: 20130918
  Receipt Date: 20130918
  Transmission Date: 20140515
  Serious: Yes (Other)
  Sender: FDA-Public Use
  Company Number: GB-AMGEN-GBRCT2013065275

PATIENT
  Age: 41 Year
  Sex: Female
  Weight: 74.2 kg

DRUGS (4)
  1. ETANERCEPT [Suspect]
     Indication: PRODUCT USED FOR UNKNOWN INDICATION
     Dosage: 50 MG, QWK
     Route: 065
     Dates: start: 20100527, end: 20110407
  2. CALCICHEW-D3 [Concomitant]
     Dosage: UNK
     Route: 065
     Dates: start: 20101021, end: 20110214
  3. FOLIC ACID [Concomitant]
     Dosage: UNK
     Route: 065
     Dates: start: 20110115
  4. GALFER [Concomitant]
     Dosage: UNK
     Route: 065
     Dates: start: 20100729

REACTIONS (1)
  - Thalamic infarction [Recovered/Resolved]
